FAERS Safety Report 7296864-7 (Version None)
Quarter: 2011Q1

REPORT INFORMATION
  Report Type: 
  Country: None (occurrence: None)
  Receive Date: 20110216
  Receipt Date: 20110207
  Transmission Date: 20110831
  Serious: Yes (Hospitalization)
  Sender: FDA-Public Use
  Company Number: FR-CEPHALON-2011000596

PATIENT
  Age: 47 Year
  Sex: Male

DRUGS (6)
  1. LYRICA [Concomitant]
  2. DURAGESIC-100 [Suspect]
     Route: 062
     Dates: start: 20110207
  3. FENTANYL CITRATE [Suspect]
     Route: 002
     Dates: start: 20110207
  4. LIVOTRIL [Concomitant]
  5. FENTANYL CITRATE [Suspect]
     Indication: CANCER PAIN
     Route: 002
  6. DURAGESIC-100 [Suspect]
     Indication: CANCER PAIN
     Route: 062

REACTIONS (3)
  - HOSPITALISATION [None]
  - DRUG PRESCRIBING ERROR [None]
  - DRUG INEFFECTIVE [None]
